FAERS Safety Report 12197405 (Version 1)
Quarter: 2016Q1

REPORT INFORMATION
  Report Type: Spontaneous
  Country: GB (occurrence: GB)
  Receive Date: 20160322
  Receipt Date: 20160322
  Transmission Date: 20160526
  Serious: Yes (Life-Threatening, Disabling, Other)
  Sender: FDA-Public Use
  Company Number: GB-ABBVIE-16K-167-1535345-00

PATIENT
  Age: 40 Year
  Sex: Male
  Weight: 93 kg

DRUGS (4)
  1. HUMIRA [Suspect]
     Active Substance: ADALIMUMAB
     Route: 058
     Dates: start: 201602, end: 201603
  2. RIVAROXABAN [Concomitant]
     Active Substance: RIVAROXABAN
     Indication: PULMONARY EMBOLISM
     Route: 048
     Dates: start: 201506
  3. QUESTRAN [Concomitant]
     Active Substance: CHOLESTYRAMINE
     Indication: BILE ACID MALABSORPTION
     Route: 048
     Dates: start: 2010
  4. HUMIRA [Suspect]
     Active Substance: ADALIMUMAB
     Indication: CROHN^S DISEASE
     Route: 058
     Dates: start: 201401, end: 201602

REACTIONS (14)
  - Arthralgia [Recovering/Resolving]
  - Pain [Recovering/Resolving]
  - Antibody test abnormal [Unknown]
  - Pulmonary embolism [Recovered/Resolved]
  - Arthralgia [Recovered/Resolved]
  - Malaise [Unknown]
  - Drug level changed [Unknown]
  - Abasia [Recovered/Resolved]
  - Abasia [Recovering/Resolving]
  - Swelling [Recovering/Resolving]
  - Foot fracture [Unknown]
  - Pulmonary embolism [Recovering/Resolving]
  - Swelling [Recovered/Resolved]
  - Gait disturbance [Unknown]

NARRATIVE: CASE EVENT DATE: 201501
